FAERS Safety Report 5485012-1 (Version None)
Quarter: 2007Q4

REPORT INFORMATION
  Report Type: 
  Country: None (occurrence: None)
  Receive Date: 20071015
  Receipt Date: 20071005
  Transmission Date: 20080405
  Serious: Yes (Other)
  Sender: FDA-Public Use
  Company Number: PHBS2007BE16924

PATIENT
  Age: 25 Year
  Sex: Female

DRUGS (2)
  1. CARBAMAZEPINE [Suspect]
     Indication: SIMPLE PARTIAL SEIZURES
     Dosage: 200 MG, BID
     Route: 065
  2. CARBAMAZEPINE [Suspect]
     Dosage: 400 MG, BID
     Route: 065

REACTIONS (5)
  - APRAXIA [None]
  - COGNITIVE DISORDER [None]
  - DISTRACTIBILITY [None]
  - MEMORY IMPAIRMENT [None]
  - SPEECH DISORDER [None]
